FAERS Safety Report 21932563 (Version 1)
Quarter: 2023Q1

REPORT INFORMATION
  Report Type: Spontaneous
  Country: US (occurrence: None)
  Receive Date: 20230131
  Receipt Date: 20230131
  Transmission Date: 20230418
  Serious: No
  Sender: FDA-Public Use
  Company Number: None

PATIENT

DRUGS (1)
  1. SILDENAFIL CITRATE [Suspect]
     Active Substance: SILDENAFIL CITRATE

REACTIONS (5)
  - Device computer issue [None]
  - Product dispensing error [None]
  - Wrong route [None]
  - Product communication issue [None]
  - Transcription medication error [None]
